FAERS Safety Report 8143523-4 (Version None)
Quarter: 2012Q1

REPORT INFORMATION
  Report Type: 
  Country: None (occurrence: None)
  Receive Date: 20120217
  Receipt Date: 20120213
  Transmission Date: 20120608
  Serious: Yes (Death, Life-Threatening)
  Sender: FDA-Public Use
  Company Number: ES-ROXANE LABORATORIES, INC.-2012-RO-00648RO

PATIENT
  Age: 57 Year
  Sex: Female

DRUGS (9)
  1. DEXAMETHASONE [Suspect]
     Indication: PLASMABLASTIC LYMPHOMA
  2. VINCRISTINE [Suspect]
     Indication: PLASMABLASTIC LYMPHOMA
  3. PRIMIDONE [Concomitant]
     Indication: EPILEPSY
  4. ISONIAZID [Concomitant]
     Indication: TUBERCULIN TEST POSITIVE
  5. AZATHIOPRINE [Suspect]
     Indication: CROHN'S DISEASE
  6. CYCLOPHOSPHAMIDE [Suspect]
     Indication: PLASMABLASTIC LYMPHOMA
  7. INFLIXIMAB [Suspect]
     Indication: CROHN'S DISEASE
  8. ADRIAMYCIN PFS [Suspect]
     Indication: PLASMABLASTIC LYMPHOMA
  9. ISONIAZID [Concomitant]
     Indication: PROPHYLAXIS
     Dosage: 300 MG

REACTIONS (2)
  - PLASMABLASTIC LYMPHOMA [None]
  - CARDIO-RESPIRATORY ARREST [None]
